FAERS Safety Report 5466673-X (Version None)
Quarter: 2007Q3

REPORT INFORMATION
  Report Type: 
  Country: None (occurrence: None)
  Receive Date: 20070924
  Receipt Date: 20070924
  Transmission Date: 20080115
  Serious: Yes (Other)
  Sender: FDA-Public Use
  Company Number: None

PATIENT
  Age: 51 Year
  Sex: Male

DRUGS (2)
  1. COMBIVIR [Suspect]
     Dates: start: 20050426, end: 20051012
  2. KALETRA [Suspect]
     Dates: start: 20050426, end: 20051012

REACTIONS (3)
  - HEPATOTOXICITY [None]
  - PNEUMOCYSTIS JIROVECI PNEUMONIA [None]
  - PNEUMONIA [None]
